FAERS Safety Report 9657807 (Version 3)
Quarter: 2013Q4

REPORT INFORMATION
  Report Type: Spontaneous
  Country: JP (occurrence: JP)
  Receive Date: 20131030
  Receipt Date: 20131213
  Transmission Date: 20140711
  Serious: Yes (Death, Hospitalization)
  Sender: FDA-Public Use
  Company Number: JP-KOWA-2013S1001941

PATIENT
  Age: 83 Year
  Sex: Female

DRUGS (13)
  1. LIVALO [Suspect]
     Indication: HYPERCHOLESTEROLAEMIA
     Route: 048
     Dates: start: 20100615
  2. PREDNISOLONE [Concomitant]
     Indication: TUBULOINTERSTITIAL NEPHRITIS
     Route: 048
     Dates: start: 20100727
  3. BLOPRESS [Concomitant]
     Indication: HYPERTENSION
     Route: 048
     Dates: start: 20100727
  4. CALBLOCK [Concomitant]
     Indication: HYPERTENSION
     Route: 048
  5. KREMEZIN [Concomitant]
     Indication: RENAL FAILURE CHRONIC
     Route: 048
     Dates: start: 20100727
  6. KAYEXALATE [Concomitant]
     Indication: HYPERKALAEMIA
     Route: 048
     Dates: start: 20130611
  7. SODIUM PICOSULFATE [Concomitant]
     Indication: CONSTIPATION
     Route: 048
     Dates: start: 20130611
  8. NEUROTROPHIN [Concomitant]
     Route: 048
  9. FEXOFENADINE                       /01314202/ [Concomitant]
     Route: 048
  10. PERSANTIN [Concomitant]
     Indication: NEPHRITIS
     Route: 048
     Dates: start: 20100615
  11. AMARYL [Concomitant]
     Indication: DIABETES MELLITUS
     Route: 048
  12. TRAZENTA [Concomitant]
     Indication: DIABETES MELLITUS
     Route: 048
     Dates: start: 20130611
  13. MARILEON [Concomitant]
     Indication: CEREBRAL INFARCTION
     Route: 048
     Dates: start: 20100615

REACTIONS (3)
  - Rhabdomyolysis [Fatal]
  - Renal failure acute [Fatal]
  - Metabolic acidosis [Unknown]
